FAERS Safety Report 17690239 (Version 1)
Quarter: 2020Q2

REPORT INFORMATION
  Report Type: Spontaneous
  Country: US (occurrence: US)
  Receive Date: 20200421
  Receipt Date: 20200421
  Transmission Date: 20200714
  Serious: No
  Sender: FDA-Public Use
  Company Number: US-PARATEK PHARMACEUTICALS, INC.-2020PTK00012

PATIENT
  Age: 35 Year
  Sex: Female
  Weight: 65 kg

DRUGS (7)
  1. AZITHROMYCIN ANHYDROUS. [Concomitant]
     Active Substance: AZITHROMYCIN ANHYDROUS
  2. MELATONIN [Concomitant]
     Active Substance: MELATONIN
  3. NUZYRA [Suspect]
     Active Substance: OMADACYCLINE
     Indication: MYCOBACTERIUM ABSCESSUS INFECTION
  4. IBUPROFEN. [Concomitant]
     Active Substance: IBUPROFEN
  5. NUZYRA [Suspect]
     Active Substance: OMADACYCLINE
     Indication: ABDOMINAL INFECTION
     Dosage: 300 MG, 1X/DAY
     Route: 048
     Dates: start: 20190815
  6. ACETAMINOPHEN. [Concomitant]
     Active Substance: ACETAMINOPHEN
  7. PYRIDOXINE [Concomitant]
     Active Substance: PYRIDOXINE

REACTIONS (4)
  - Off label use [Not Recovered/Not Resolved]
  - Drug dose titration not performed [Not Recovered/Not Resolved]
  - Incorrect product administration duration [Not Recovered/Not Resolved]
  - Nausea [Recovered/Resolved]

NARRATIVE: CASE EVENT DATE: 20190815
